FAERS Safety Report 24787440 (Version 1)
Quarter: 2024Q4

REPORT INFORMATION
  Report Type: Spontaneous
  Country: NL (occurrence: NL)
  Receive Date: 20241230
  Receipt Date: 20241230
  Transmission Date: 20250115
  Serious: Yes (Death)
  Sender: ROCHE
  Company Number: NL-ROCHE-3310771

PATIENT
  Sex: Female

DRUGS (1)
  1. AVASTIN [Suspect]
     Active Substance: BEVACIZUMAB
     Indication: Small intestinal haemorrhage
     Route: 065

REACTIONS (2)
  - Off label use [Unknown]
  - Cerebral infarction [Fatal]
